FAERS Safety Report 8177017-7 (Version None)
Quarter: 2012Q1

REPORT INFORMATION
  Report Type: 
  Country: None (occurrence: None)
  Receive Date: 20120301
  Receipt Date: 20120224
  Transmission Date: 20120608
  Serious: Yes (Other)
  Sender: FDA-Public Use
  Company Number: US-ABBOTT-12P-163-0908633-00

PATIENT
  Sex: Female
  Weight: 72.64 kg

DRUGS (1)
  1. HUMIRA [Suspect]
     Indication: ANKYLOSING SPONDYLITIS
     Route: 058
     Dates: start: 20060101

REACTIONS (4)
  - DEVICE LEAD DAMAGE [None]
  - ABDOMINAL DISTENSION [None]
  - URINARY TRACT INFECTION [None]
  - URINARY INCONTINENCE [None]
